FAERS Safety Report 5468095-4 (Version None)
Quarter: 2007Q3

REPORT INFORMATION
  Report Type: 
  Country: None (occurrence: None)
  Receive Date: 20070820
  Receipt Date: 20070607
  Transmission Date: 20080115
  Serious: No
  Sender: FDA-Public Use
  Company Number: WAES 0704USA02158

PATIENT
  Age: 62 Year
  Sex: Female
  Weight: 72.5755 kg

DRUGS (5)
  1. JANUVIA [Suspect]
     Indication: DIABETES MELLITUS
     Dosage: 100 MG/DAILY/PO
     Route: 048
     Dates: start: 20070319, end: 20070320
  2. GLIPIZIDE [Concomitant]
  3. HYZAAR [Concomitant]
  4. TRANXENE [Concomitant]
  5. LISINOPRIL [Concomitant]

REACTIONS (1)
  - EYE SWELLING [None]
